FAERS Safety Report 4555856-9 (Version None)
Quarter: 2005Q1

REPORT INFORMATION
  Report Type: 
  Country: None (occurrence: None)
  Receive Date: 20050111
  Receipt Date: 20041119
  Transmission Date: 20050727
  Serious: No
  Sender: FDA-Public Use
  Company Number: 2004S1000262

PATIENT
  Age: 17 Year
  Sex: Female
  Weight: 128.6 kg

DRUGS (3)
  1. CUBICIN [Suspect]
     Indication: SKIN LESION
     Dosage: 500 MG;Q24H;IV
     Route: 042
     Dates: start: 20041117, end: 20041118
  2. CUBICIN [Suspect]
     Indication: STAPHYLOCOCCAL INFECTION
     Dosage: 500 MG;Q24H;IV
     Route: 042
     Dates: start: 20041117, end: 20041118
  3. HYDROCODONE BITARTRATE [Concomitant]

REACTIONS (2)
  - DYSPHAGIA [None]
  - OROPHARYNGEAL SWELLING [None]
